FAERS Safety Report 9021979 (Version 1)
Quarter: 2013Q1

REPORT INFORMATION
  Report Type: Spontaneous
  Country: US (occurrence: US)
  Receive Date: 20130118
  Receipt Date: 20130118
  Transmission Date: 20140127
  Serious: Yes (Other)
  Sender: FDA-Public Use
  Company Number: US-PFIZER INC-2013022076

PATIENT
  Age: 55 Year
  Sex: Female
  Weight: 54.42 kg

DRUGS (3)
  1. IBUPROFEN [Suspect]
     Indication: MIGRAINE
     Dosage: 800 MG, DAILY
  2. TOPIRAMATE [Concomitant]
     Indication: EPILEPSY
     Dosage: 25 MG, 2X/DAY
  3. KEPPRA [Concomitant]
     Indication: EPILEPSY
     Dosage: 1500 MG, 2X/DAY

REACTIONS (2)
  - Gastric ulcer [Unknown]
  - Expired drug administered [Unknown]
